FAERS Safety Report 15148139 (Version 1)
Quarter: 2018Q3

REPORT INFORMATION
  Report Type: Spontaneous
  Country: ES (occurrence: ES)
  Receive Date: 20180716
  Receipt Date: 20180716
  Transmission Date: 20181010
  Serious: Yes (Other)
  Sender: FDA-Public Use
  Company Number: ES-ROCHE-2155196

PATIENT
  Age: 31 Year
  Sex: Male
  Weight: 71 kg

DRUGS (16)
  1. DACORTIN [Concomitant]
     Active Substance: PREDNISONE
     Indication: IMMUNOSUPPRESSION
     Route: 048
  2. ORFIDAL [Concomitant]
     Active Substance: LORAZEPAM
     Route: 065
     Dates: start: 20180130
  3. SEPTRIN FORTE [Concomitant]
     Active Substance: SULFAMETHOXAZOLE\TRIMETHOPRIM
     Indication: PROPHYLAXIS
     Dosage: 1 COMP
     Route: 048
  4. ZARATOR [Concomitant]
     Active Substance: ATORVASTATIN CALCIUM
     Route: 065
  5. PROGRAF [Concomitant]
     Active Substance: TACROLIMUS\TACROLIMUS ANHYDROUS
     Indication: IMMUNOSUPPRESSION
     Route: 065
  6. DEPRAX (SPAIN) [Concomitant]
     Active Substance: TRAZODONE HYDROCHLORIDE
     Route: 048
  7. COZAAR COMP [Concomitant]
     Active Substance: HYDROCHLOROTHIAZIDE\LOSARTAN POTASSIUM
     Indication: HYPERTENSION
     Route: 048
  8. CYMEVENE [Suspect]
     Active Substance: GANCICLOVIR
     Indication: CYTOMEGALOVIRUS INFECTION
     Route: 042
     Dates: start: 20180117, end: 20180204
  9. SEGURIL [Concomitant]
     Active Substance: FUROSEMIDE
     Dosage: 1 COMP
     Route: 048
  10. PANTOPRAZOL [Concomitant]
     Active Substance: PANTOPRAZOLE SODIUM
     Route: 048
  11. ZYLORIC [Concomitant]
     Active Substance: ALLOPURINOL
     Route: 065
  12. NOCTAMID [Concomitant]
     Active Substance: LORMETAZEPAM
     Route: 065
     Dates: start: 20180120
  13. EVEROLIMUS. [Concomitant]
     Active Substance: EVEROLIMUS
     Indication: IMMUNOSUPPRESSION
     Route: 048
  14. ZARATOR [Concomitant]
     Active Substance: ATORVASTATIN CALCIUM
     Route: 048
  15. MYCOSTATIN SUSPENSION [Concomitant]
     Route: 048
  16. FOSCAVIR [Suspect]
     Active Substance: FOSCARNET SODIUM
     Indication: CYTOMEGALOVIRUS INFECTION
     Dosage: 1 Y 2 DE /02/18  6 G/12 H. EL 04/02/18 REDUCE DOSIS A 4G/24H.  REDUCION DE DOSIS. 04/04/18 REINGR...
     Route: 042
     Dates: start: 20180203, end: 20180313

REACTIONS (3)
  - Hypomagnesaemia [Recovering/Resolving]
  - Renal failure [Recovering/Resolving]
  - Hypocalcaemia [Recovering/Resolving]

NARRATIVE: CASE EVENT DATE: 20180203
